FAERS Safety Report 21729378 (Version 1)
Quarter: 2022Q4

REPORT INFORMATION
  Report Type: Spontaneous
  Country: US (occurrence: None)
  Receive Date: 20221214
  Receipt Date: 20221214
  Transmission Date: 20230112
  Serious: No
  Sender: FDA-Public Use
  Company Number: 2022A386750

PATIENT
  Age: 71 Year
  Sex: Female
  Weight: 111.1 kg

DRUGS (1)
  1. BYDUREON BCISE [Suspect]
     Active Substance: EXENATIDE
     Indication: Type 2 diabetes mellitus
     Route: 058

REACTIONS (5)
  - Injected limb mobility decreased [Unknown]
  - Injection site discharge [Unknown]
  - Haemorrhage [Recovered/Resolved]
  - Adverse event [Unknown]
  - Injury associated with device [Unknown]

NARRATIVE: CASE EVENT DATE: 20221121
